FAERS Safety Report 9658694 (Version 2)
Quarter: 2013Q4

REPORT INFORMATION
  Report Type: Spontaneous
  Country: US (occurrence: US)
  Receive Date: 20131030
  Receipt Date: 20131030
  Transmission Date: 20140711
  Serious: No
  Sender: FDA-Public Use
  Company Number: US-PURDUE-USA-2010-0048939

PATIENT
  Age: 40 Year
  Sex: Female
  Weight: 83.9 kg

DRUGS (4)
  1. OXYCONTIN (NDA 22-272) [Suspect]
     Indication: PAIN
     Dosage: 80 MG, BID
  2. OXYCODONE HCL IR CAPSULES [Concomitant]
     Indication: PAIN
  3. NORCO [Concomitant]
     Indication: BREAKTHROUGH PAIN
  4. SELMALEN [Concomitant]
     Indication: BREAKTHROUGH PAIN

REACTIONS (7)
  - General physical health deterioration [Unknown]
  - Pain [Unknown]
  - Product quality issue [Unknown]
  - Abdominal pain upper [Unknown]
  - Fatigue [Unknown]
  - Abdominal discomfort [Recovered/Resolved]
  - Inadequate analgesia [Recovered/Resolved]
